FAERS Safety Report 7821214-4 (Version None)
Quarter: 2011Q4

REPORT INFORMATION
  Report Type: 
  Country: None (occurrence: None)
  Receive Date: 20111018
  Receipt Date: 20111007
  Transmission Date: 20120403
  Serious: Yes (Other)
  Sender: FDA-Public Use
  Company Number: GB-TEVA-270784ISR

PATIENT
  Age: 61 Year
  Sex: Female

DRUGS (6)
  1. DILTIAZEM HCL [Suspect]
     Route: 048
     Dates: end: 20101104
  2. TONIC FORM HERBALIST [Concomitant]
     Indication: MIGRAINE
  3. DILTIAZEM HCL [Suspect]
     Route: 048
     Dates: start: 20101006, end: 20101104
  4. BENDROFLUMETHIAZIDE [Concomitant]
  5. ASPIRIN [Concomitant]
     Dosage: 75 MILLIGRAM;
     Dates: start: 20101202
  6. DANDELION [Concomitant]
     Indication: POLYURIA

REACTIONS (8)
  - BLOOD PRESSURE INCREASED [None]
  - DRUG HYPERSENSITIVITY [None]
  - VISION BLURRED [None]
  - HYPOAESTHESIA [None]
  - NAUSEA [None]
  - VERTIGO [None]
  - DIZZINESS [None]
  - VISUAL IMPAIRMENT [None]
